FAERS Safety Report 8412971-7 (Version None)
Quarter: 2012Q2

REPORT INFORMATION
  Report Type: 
  Country: None (occurrence: None)
  Receive Date: 20120605
  Receipt Date: 20120529
  Transmission Date: 20120825
  Serious: No
  Sender: FDA-Public Use
  Company Number: US-AMGEN-USASP2012030599

PATIENT
  Age: 58 Year
  Sex: Male

DRUGS (3)
  1. TREXALL [Concomitant]
     Dosage: 2.5 MG, UNK
     Dates: start: 20110501
  2. ENBREL [Suspect]
     Indication: RHEUMATOID ARTHRITIS
     Dosage: 50 MG, QWK
     Dates: start: 20120412
  3. TREXALL [Concomitant]
     Dosage: 1 MG, UNK
     Dates: start: 20110501

REACTIONS (6)
  - NEUROPATHY PERIPHERAL [None]
  - DIZZINESS [None]
  - RHEUMATOID ARTHRITIS [None]
  - TEMPOROMANDIBULAR JOINT SYNDROME [None]
  - SPIDER VEIN [None]
  - MUSCULOSKELETAL STIFFNESS [None]
